FAERS Safety Report 6360309-1 (Version None)
Quarter: 2009Q3

REPORT INFORMATION
  Report Type: 
  Country: None (occurrence: None)
  Receive Date: 20090917
  Receipt Date: 20090911
  Transmission Date: 20100115
  Serious: Yes (Hospitalization, Other)
  Sender: FDA-Public Use
  Company Number: GB-TEVA-209151ISR

PATIENT

DRUGS (8)
  1. AMOXICILLIN [Suspect]
     Indication: PYREXIA
  2. AMOXICILLIN [Suspect]
     Indication: MALAISE
  3. AMOXICILLIN [Suspect]
     Indication: NAUSEA
  4. AMOXICILLIN [Suspect]
     Indication: VOMITING
  5. PARACETAMOL [Suspect]
     Indication: PYREXIA
     Route: 048
  6. PARACETAMOL [Suspect]
     Indication: MALAISE
  7. PARACETAMOL [Suspect]
     Indication: NAUSEA
  8. PARACETAMOL [Suspect]
     Indication: VOMITING

REACTIONS (11)
  - ACUTE HEPATIC FAILURE [None]
  - BLOOD UREA INCREASED [None]
  - COAGULOPATHY [None]
  - ENCEPHALOPATHY [None]
  - HEPATOMEGALY [None]
  - HYPERAMMONAEMIA [None]
  - HYPOGLYCAEMIA [None]
  - LACTIC ACIDOSIS [None]
  - METABOLIC ACIDOSIS [None]
  - TRANSAMINASES INCREASED [None]
  - VOMITING [None]
